FAERS Safety Report 6278242-2 (Version None)
Quarter: 2009Q3

REPORT INFORMATION
  Report Type: 
  Country: None (occurrence: None)
  Receive Date: 20090722
  Receipt Date: 20090720
  Transmission Date: 20100115
  Serious: Yes (Hospitalization)
  Sender: FDA-Public Use
  Company Number: DE-WYE-G04080109

PATIENT

DRUGS (1)
  1. VENLAFAXINE HCL [Suspect]
     Dosage: 40 TABLETS OR CAPSULES (OVERDOSE AMOUNT UNKNOWN)
     Route: 048
     Dates: start: 20090717, end: 20090717

REACTIONS (3)
  - DISTURBANCE IN ATTENTION [None]
  - INTENTIONAL OVERDOSE [None]
  - SUICIDE ATTEMPT [None]
